FAERS Safety Report 25323184 (Version 2)
Quarter: 2025Q2

REPORT INFORMATION
  Report Type: Spontaneous
  Country: SI (occurrence: SI)
  Receive Date: 20250516
  Receipt Date: 20250523
  Transmission Date: 20250717
  Serious: Yes (Other)
  Sender: BAYER HEALTHCARE PHARMACEUTICALS INC.
  Company Number: SI-BAYER-2025A062928

PATIENT
  Age: 69 Year
  Sex: Male

DRUGS (8)
  1. KERENDIA [Suspect]
     Active Substance: FINERENONE
  2. EMPAGLIFLOZIN AND METFORMIN HYDROCHLORIDE [Concomitant]
     Active Substance: EMPAGLIFLOZIN\METFORMIN HYDROCHLORIDE
  3. SEMAGLUTIDE [Concomitant]
     Active Substance: SEMAGLUTIDE
     Route: 048
  4. AMLODIPINE BESYLATE\PERINDOPRIL ERBUMINE [Concomitant]
     Active Substance: AMLODIPINE BESYLATE\PERINDOPRIL ERBUMINE
  5. ASPIRIN [Concomitant]
     Active Substance: ASPIRIN
  6. ATORVASTATIN CALCIUM [Concomitant]
     Active Substance: ATORVASTATIN CALCIUM
  7. ESOMEPRAZOLE MAGNESIUM [Concomitant]
     Active Substance: ESOMEPRAZOLE MAGNESIUM
  8. NEBIVOLOL [Concomitant]
     Active Substance: NEBIVOLOL

REACTIONS (1)
  - Blood pressure systolic increased [Not Recovered/Not Resolved]
